FAERS Safety Report 6258347-2 (Version None)
Quarter: 2009Q3

REPORT INFORMATION
  Report Type: 
  Country: None (occurrence: None)
  Receive Date: 20090702
  Receipt Date: 20090702
  Transmission Date: 20100115
  Serious: No
  Sender: FDA-Public Use
  Company Number: None

PATIENT
  Age: 71 Year
  Sex: Female
  Weight: 81.6475 kg

DRUGS (1)
  1. FERRLECIT [Suspect]
     Indication: ANAEMIA
     Dosage: 125 MG 3 X WEEK IV BOLUS
     Route: 040

REACTIONS (4)
  - HYPOTENSION [None]
  - NAUSEA [None]
  - PYREXIA [None]
  - VOMITING [None]
